FAERS Safety Report 6332621-3 (Version None)
Quarter: 2009Q3

REPORT INFORMATION
  Report Type: 
  Country: None (occurrence: None)
  Receive Date: 20090828
  Receipt Date: 20090824
  Transmission Date: 20100115
  Serious: Yes (Other)
  Sender: FDA-Public Use
  Company Number: FR-ROCHE-651892

PATIENT
  Age: 64 Year
  Sex: Female

DRUGS (7)
  1. CAPECITABINE [Suspect]
     Dosage: THIRD LINE OF CHEMOTHERAPY
     Route: 065
     Dates: start: 20070501
  2. TRASTUZUMAB [Suspect]
     Dosage: SECOND LINE OF CHEMOTHERAPY
     Route: 065
  3. BEVACIZUMAB [Suspect]
     Dosage: FOURTH LINE OF CHEMOTHERAPY; ON DAYS 1 AND 15.
     Route: 065
     Dates: start: 20070901
  4. PACLITAXEL [Suspect]
     Dosage: SECOND LINE OF CHEMOTHERAPY
     Route: 065
  5. PACLITAXEL [Suspect]
     Dosage: FOURTH LINE OF CHEMOTHERAPY; ON DAYS 1, 8 AND 15
     Route: 065
     Dates: start: 20070901
  6. VINORELBINE [Suspect]
     Dosage: SECOND LINE OF CHEMOTHERAPY
     Route: 065
  7. LAPATINIB [Suspect]
     Dosage: THIRD LINE OF CHEMOTHERAPY
     Route: 065
     Dates: start: 20070501

REACTIONS (1)
  - MALIGNANT NEOPLASM PROGRESSION [None]
